FAERS Safety Report 9530265 (Version 2)
Quarter: 2013Q4

REPORT INFORMATION
  Report Type: Report from Study
  Country: JP (occurrence: JP)
  Receive Date: 20130917
  Receipt Date: 20131015
  Transmission Date: 20140711
  Serious: Yes (Hospitalization)
  Sender: FDA-Public Use
  Company Number: JP-UCBSA-097140

PATIENT
  Age: 79 Year
  Sex: Male

DRUGS (4)
  1. E KEPPRA [Suspect]
     Indication: PARTIAL SEIZURES WITH SECONDARY GENERALISATION
     Route: 048
     Dates: start: 20130509
  2. BUP-4 [Concomitant]
     Dosage: TOTAL DAILY DOSE-10MG
     Route: 048
  3. EXCEGRAN [Concomitant]
     Dosage: TOTAL DAILY DOSE-200MG
     Route: 048
  4. MYSLEE [Concomitant]
     Dosage: TOTAL DAILY DOSE-10MG
     Route: 048

REACTIONS (1)
  - Epistaxis [Recovered/Resolved]
